FAERS Safety Report 14570165 (Version 1)
Quarter: 2018Q1

REPORT INFORMATION
  Report Type: Report from Study
  Country: None (occurrence: BE)
  Receive Date: 20180225
  Receipt Date: 20180225
  Transmission Date: 20180509
  Serious: Yes (Hospitalization)
  Sender: FDA-Public Use
  Company Number: BE-ABBVIE-18K-013-2268380-00

PATIENT
  Sex: Male

DRUGS (3)
  1. DUODOPA [Suspect]
     Active Substance: CARBIDOPA\LEVODOPA
     Dosage: MD=1ML?CD=3.8ML/HR DURING 16HRS ?ED=2.5ML?ND=1.8ML/HR DURING 8HRS
     Route: 050
     Dates: start: 20170925
  2. DUODOPA [Suspect]
     Active Substance: CARBIDOPA\LEVODOPA
     Dosage: DOSES CONTINUOUSLY MONITORED AND ADAPTED
     Route: 050
     Dates: start: 20120628, end: 20170925
  3. DUODOPA [Suspect]
     Active Substance: CARBIDOPA\LEVODOPA
     Indication: PARKINSON^S DISEASE
     Dosage: MD=5ML?CD=3.5ML/HR DURING 16HRS ?ED=3ML
     Route: 050
     Dates: start: 20120625, end: 20120628

REACTIONS (1)
  - Pneumonia [Recovering/Resolving]
